FAERS Safety Report 13618613 (Version 2)
Quarter: 2017Q3

REPORT INFORMATION
  Report Type: Spontaneous
  Country: KR (occurrence: KR)
  Receive Date: 20170606
  Receipt Date: 20170802
  Transmission Date: 20171127
  Serious: Yes (Other)
  Sender: FDA-Public Use
  Company Number: KR-009507513-1706KOR001110

PATIENT
  Age: 64 Year
  Sex: Male
  Weight: 58.1 kg

DRUGS (10)
  1. DEXAMETHASONE SODIUM PHOSPHATE. [Concomitant]
     Active Substance: DEXAMETHASONE SODIUM PHOSPHATE
     Indication: PROPHYLAXIS OF NAUSEA AND VOMITING
     Dosage: 20 MG, QD
     Route: 042
     Dates: start: 20170130, end: 20170130
  2. MECKOOL [Concomitant]
     Indication: PROPHYLAXIS OF NAUSEA AND VOMITING
     Dosage: 2 NG, QD
     Route: 042
     Dates: start: 20170130, end: 20170210
  3. CISPLAN [Concomitant]
     Active Substance: CISPLATIN
     Indication: NASOPHARYNGEAL CANCER
     Dosage: STRENGTH: 50MG/100ML; 65.6 MG, ONCE; ROUTE: INF
     Dates: start: 20170130, end: 20170130
  4. EMEND (FOSAPREPITANT DIMEGLUMINE) [Suspect]
     Active Substance: FOSAPREPITANT DIMEGLUMINE
     Indication: PROPHYLAXIS OF NAUSEA AND VOMITING
     Dosage: 150 MG, ONCE
     Route: 042
     Dates: start: 20170130, end: 20170130
  5. SANCUSO [Concomitant]
     Active Substance: GRANISETRON
     Indication: PROPHYLAXIS OF NAUSEA AND VOMITING
     Dosage: 34.3 MG, QD; ROUTE: OTHER (SKIN ABSORPTION)
     Route: 050
     Dates: start: 20170130, end: 20170130
  6. MORPHINE SULFATE. [Concomitant]
     Active Substance: MORPHINE SULFATE
     Indication: PAIN PROPHYLAXIS
     Dosage: STRENGTH: 5MG/5ML; 2 MG, Q4H
     Route: 042
     Dates: start: 20170115, end: 20170206
  7. MEGACE [Concomitant]
     Active Substance: MEGESTROL ACETATE
     Indication: DECREASED APPETITE
     Dosage: 20 ML, QD
     Route: 048
     Dates: start: 20170201
  8. OLIMEL [Concomitant]
     Active Substance: AMINO ACIDS\DEXTROSE\SOYBEAN OIL
     Indication: MALNUTRITION
     Dosage: 1000 ML, QD; ROUTE: INF
     Dates: start: 20170201, end: 20170209
  9. MORPHINE SULFATE. [Concomitant]
     Active Substance: MORPHINE SULFATE
     Indication: PAIN PROPHYLAXIS
     Dosage: STRENGTH: 10MG/ML; 10 MG, QD
     Route: 042
     Dates: start: 20170201
  10. ATIVAN [Concomitant]
     Active Substance: LORAZEPAM
     Indication: PROPHYLAXIS OF NAUSEA AND VOMITING
     Dosage: STRENGTH: 4MG/ML; 1 MG, BID
     Route: 042
     Dates: start: 20170131, end: 20170203

REACTIONS (2)
  - Hyperkalaemia [Recovered/Resolved]
  - Blood bilirubin increased [Recovered/Resolved]

NARRATIVE: CASE EVENT DATE: 20170202
